FAERS Safety Report 5993117-1 (Version None)
Quarter: 2008Q4

REPORT INFORMATION
  Report Type: 
  Country: None (occurrence: None)
  Receive Date: 20081212
  Receipt Date: 20080603
  Transmission Date: 20090506
  Serious: No
  Sender: FDA-Public Use
  Company Number: US-AMGEN-KDL281528

PATIENT
  Sex: Female

DRUGS (1)
  1. ENBREL [Suspect]
     Indication: RHEUMATOID ARTHRITIS
     Route: 058
     Dates: start: 20000301

REACTIONS (5)
  - FUNGAL INFECTION [None]
  - HERPES ZOSTER [None]
  - INFECTION [None]
  - NAIL DISORDER [None]
  - RHEUMATOID ARTHRITIS [None]
